FAERS Safety Report 11976220 (Version 1)
Quarter: 2016Q1

REPORT INFORMATION
  Report Type: Spontaneous
  Country: US (occurrence: None)
  Receive Date: 20160128
  Receipt Date: 20160128
  Transmission Date: 20160526
  Serious: Yes (Hospitalization)
  Sender: FDA-Public Use
  Company Number: None

PATIENT
  Age: 32 Year
  Sex: Female
  Weight: 146.2 kg

DRUGS (10)
  1. INTERFERON GAMMA NOS [Suspect]
     Active Substance: INTERFERON GAMMA
     Indication: BREAST CANCER METASTATIC
     Dates: start: 20160104, end: 20160124
  2. VITAMIN C [Concomitant]
     Active Substance: ASCORBIC ACID
  3. ALEVE [Concomitant]
     Active Substance: NAPROXEN SODIUM
  4. NIVOLUMAB [Suspect]
     Active Substance: NIVOLUMAB
     Indication: BREAST CANCER METASTATIC
     Dates: start: 20160112
  5. VITAMIN B COMPLEX [Concomitant]
     Active Substance: CYANOCOBALAMIN\DEXPANTHENOL\NIACINAMIDE\PYRIDOXINE HYDROCHLORIDE\RIBOFLAVIN 5^-PHOSPHATE SODIUM\THIAMINE HYDROCHLORIDE\VITAMIN B COMPLEX
  6. VITAMIN D [Concomitant]
     Active Substance: CHOLECALCIFEROL
  7. POTASSIUM SUPPLEMENT [Concomitant]
     Active Substance: POTASSIUM
  8. OXYCODONE [Concomitant]
     Active Substance: OXYCODONE
  9. MILK THISTLE [Concomitant]
     Active Substance: MILK THISTLE
  10. TUMERIC [Concomitant]
     Active Substance: TURMERIC

REACTIONS (7)
  - Musculoskeletal pain [None]
  - Fatigue [None]
  - Abdominal pain [None]
  - Weight decreased [None]
  - Decreased appetite [None]
  - Failure to thrive [None]
  - Back pain [None]

NARRATIVE: CASE EVENT DATE: 20160126
